FAERS Safety Report 9829941 (Version 1)
Quarter: 2014Q1

REPORT INFORMATION
  Report Type: Spontaneous
  Country: US (occurrence: US)
  Receive Date: 20140120
  Receipt Date: 20140120
  Transmission Date: 20141002
  Serious: Yes (Other)
  Sender: FDA-Public Use
  Company Number: US-GE HEALTHCARE MEDICAL DIAGNOSTICS-OMPQ-PR-1401S-0036

PATIENT
  Age: 46 Year
  Sex: Female

DRUGS (8)
  1. OMNIPAQUE [Suspect]
     Indication: CERVICAL MYELOPATHY
     Route: 042
     Dates: start: 20140114, end: 20140114
  2. OMNIPAQUE [Suspect]
     Indication: DIAGNOSTIC PROCEDURE
  3. SYNTHROID [Concomitant]
  4. LOPRESSOR [Concomitant]
  5. DECADRON [Concomitant]
  6. PEPCID [Concomitant]
  7. ATIVAN [Concomitant]
  8. PROVENTIL [Concomitant]

REACTIONS (2)
  - Pruritus [Unknown]
  - Urticaria [Unknown]
